FAERS Safety Report 14161512 (Version 1)
Quarter: 2017Q4

REPORT INFORMATION
  Report Type: Spontaneous
  Country: CA (occurrence: CA)
  Receive Date: 20171106
  Receipt Date: 20171106
  Transmission Date: 20180321
  Serious: Yes (Death, Other)
  Sender: FDA-Public Use
  Company Number: CA-PFIZER INC-2017477329

PATIENT
  Age: 74 Year
  Sex: Female

DRUGS (4)
  1. GLUCOSAMINE [Concomitant]
     Active Substance: GLUCOSAMINE
     Dosage: UNK
  2. HUMULIN N [Concomitant]
     Active Substance: INSULIN HUMAN
     Dosage: UNK
  3. SOMAVERT [Suspect]
     Active Substance: PEGVISOMANT
     Indication: ACROMEGALY
     Dosage: 15 MG, 1X/DAY
     Route: 058
     Dates: start: 2006
  4. HUMALOG [Concomitant]
     Active Substance: INSULIN LISPRO
     Dosage: UNK

REACTIONS (2)
  - Myocardial infarction [Fatal]
  - Brain injury [Unknown]

NARRATIVE: CASE EVENT DATE: 2017
